FAERS Safety Report 15397155 (Version 1)
Quarter: 2018Q3

REPORT INFORMATION
  Report Type: Other
  Country: US (occurrence: US)
  Receive Date: 20180918
  Receipt Date: 20180918
  Transmission Date: 20181010
  Serious: No
  Sender: FDA-Public Use
  Company Number: US-LEADIANT BIOSCIENCES INC-2018STPI000410

PATIENT
  Sex: Male

DRUGS (4)
  1. PEPCID                             /00305201/ [Concomitant]
     Active Substance: ALUMINUM HYDROXIDE\MAGNESIUM CARBONATE
  2. MEGACE [Concomitant]
     Active Substance: MEGESTROL ACETATE
  3. BACTRIM [Concomitant]
     Active Substance: SULFAMETHOXAZOLE\TRIMETHOPRIM
  4. MATULANE [Suspect]
     Active Substance: PROCARBAZINE HYDROCHLORIDE
     Indication: BRAIN NEOPLASM MALIGNANT
     Dosage: 20 MG, Q 6 HOURS FOR 4 DOSES
     Route: 048
     Dates: start: 20170222

REACTIONS (1)
  - Platelet count decreased [Not Recovered/Not Resolved]
